FAERS Safety Report 11111853 (Version 4)
Quarter: 2015Q2

REPORT INFORMATION
  Report Type: Spontaneous
  Country: CN (occurrence: CN)
  Receive Date: 20150514
  Receipt Date: 20150604
  Transmission Date: 20150821
  Serious: Yes (Life-Threatening, Hospitalization, Other)
  Sender: FDA-Public Use
  Company Number: CN-009507513-1505CHN005342

PATIENT
  Age: 57 Year
  Sex: Male
  Weight: 82 kg

DRUGS (10)
  1. LEVOCARNITINE. [Concomitant]
     Active Substance: LEVOCARNITINE
     Indication: CARDIOVASCULAR EVENT PROPHYLAXIS
     Dosage: 4 G, QD
     Route: 041
     Dates: start: 20150509, end: 20150511
  2. CISPLATIN. [Concomitant]
     Active Substance: CISPLATIN
     Indication: CHEMOTHERAPY
     Dosage: 40 MG, QD
     Route: 041
     Dates: start: 20150509, end: 20150511
  3. PREDNISOLONE. [Concomitant]
     Active Substance: PREDNISOLONE
     Indication: ADRENOCORTICAL STEROID THERAPY
     Dosage: 30 MG, QD, HYDROPREDNISONE
     Route: 041
     Dates: start: 20150509, end: 20150511
  4. OMEPRAZOLE. [Concomitant]
     Active Substance: OMEPRAZOLE
     Dosage: 40 MG, QD, PROTON-PUMP INHIBITOR
     Route: 042
     Dates: start: 20150509, end: 20150511
  5. ALPROSTADIL. [Concomitant]
     Active Substance: ALPROSTADIL
     Indication: CARDIOVASCULAR EVENT PROPHYLAXIS
     Dosage: 20 MICROGRAM, QD
     Route: 042
     Dates: start: 20150509, end: 20150511
  6. EMEND [Suspect]
     Active Substance: APREPITANT
     Indication: PROPHYLAXIS OF NAUSEA AND VOMITING
     Dosage: 125 MG, ONCE
     Route: 048
     Dates: start: 20150509, end: 20150509
  7. EMEND [Suspect]
     Active Substance: APREPITANT
     Dosage: 80 MG, QD
     Route: 048
     Dates: start: 20150510, end: 20150511
  8. ETOPOSIDE. [Concomitant]
     Active Substance: ETOPOSIDE
     Indication: CHEMOTHERAPY
     Dosage: 0.16 G, QD
     Route: 041
     Dates: start: 20150509, end: 20150511
  9. PALONOSETRON HYDROCHLORIDE [Concomitant]
     Active Substance: PALONOSETRON HYDROCHLORIDE
     Indication: PROPHYLAXIS OF NAUSEA AND VOMITING
     Dosage: 0.25 MG, QD
     Route: 042
     Dates: start: 20150509, end: 20150511
  10. VITAMINS (UNSPECIFIED) [Concomitant]
     Active Substance: VITAMINS
     Indication: VITAMIN SUPPLEMENTATION
     Dosage: 2 BOXES, QD, FAT-SOLUBLE AND WATER SOLUBLE VITAMIN FOR INJECTION
     Route: 041
     Dates: start: 20150509, end: 20150511

REACTIONS (2)
  - Epilepsy [Recovering/Resolving]
  - Epilepsy [Recovering/Resolving]

NARRATIVE: CASE EVENT DATE: 20150510
